FAERS Safety Report 20172369 (Version 1)
Quarter: 2021Q4

REPORT INFORMATION
  Report Type: Report from Study
  Country: MX (occurrence: MX)
  Receive Date: 20211210
  Receipt Date: 20211210
  Transmission Date: 20220304
  Serious: Yes (Death)
  Sender: FDA-Public Use
  Company Number: MX-BRISTOL-MYERS SQUIBB COMPANY-BMS-2021-042986

PATIENT
  Age: 47 Year
  Sex: Female

DRUGS (1)
  1. NIVOLUMAB [Suspect]
     Active Substance: NIVOLUMAB
     Indication: Malignant melanoma
     Dosage: 100 MILLIGRAM, Q3WK (21 DAYS)
     Route: 042
     Dates: start: 20200525, end: 20211112

REACTIONS (2)
  - Illness [Fatal]
  - Off label use [Unknown]

NARRATIVE: CASE EVENT DATE: 20211021
